FAERS Safety Report 6203596-2 (Version None)
Quarter: 2009Q2

REPORT INFORMATION
  Report Type: 
  Country: None (occurrence: None)
  Receive Date: 20090522
  Receipt Date: 20090522
  Transmission Date: 20091009
  Serious: No
  Sender: FDA-Public Use
  Company Number: None

PATIENT
  Sex: Female
  Weight: 57.6068 kg

DRUGS (2)
  1. EFFEXOR XR [Suspect]
     Indication: ANXIETY
     Dosage: 150 MG ONCE A DAY PO 4 YEARS ON AND OFF
     Route: 048
     Dates: start: 20030620, end: 20090514
  2. EFFEXOR XR [Suspect]
     Indication: GENERALISED ANXIETY DISORDER
     Dosage: 150 MG ONCE A DAY PO 4 YEARS ON AND OFF
     Route: 048
     Dates: start: 20030620, end: 20090514

REACTIONS (15)
  - APHASIA [None]
  - DIZZINESS [None]
  - DRUG DOSE OMISSION [None]
  - DRUG INEFFECTIVE [None]
  - FEELING ABNORMAL [None]
  - HEADACHE [None]
  - HOT FLUSH [None]
  - HYPERHIDROSIS [None]
  - MEMORY IMPAIRMENT [None]
  - NAUSEA [None]
  - NERVOUSNESS [None]
  - TINNITUS [None]
  - UNEVALUABLE EVENT [None]
  - VERTIGO [None]
  - WITHDRAWAL SYNDROME [None]
